FAERS Safety Report 9205930 (Version 1)
Quarter: 2013Q2

REPORT INFORMATION
  Report Type: Spontaneous
  Country: US (occurrence: None)
  Receive Date: 20130401
  Receipt Date: 20130401
  Transmission Date: 20140414
  Serious: Yes (Hospitalization)
  Sender: FDA-Public Use
  Company Number: US-011249

PATIENT
  Sex: Male

DRUGS (1)
  1. DEGARELIX [Suspect]
     Indication: PRODUCT USED FOR UNKNOWN INDICATION
     Dosage: 2 INJECTIONS ONE ON EACH SIDE OF THE ABDOMEN.

REACTIONS (1)
  - Cellulitis [None]
